FAERS Safety Report 10328845 (Version 1)
Quarter: 2014Q3

REPORT INFORMATION
  Report Type: Spontaneous
  Country: US (occurrence: None)
  Receive Date: 20140718
  Receipt Date: 20140718
  Transmission Date: 20150326
  Serious: Yes (Other)
  Sender: FDA-Public Use
  Company Number: None

PATIENT
  Age: 53 Year
  Sex: Female

DRUGS (7)
  1. TRAZODONE [Concomitant]
     Active Substance: TRAZODONE HYDROCHLORIDE
  2. ALEVE [Concomitant]
     Active Substance: NAPROXEN SODIUM
  3. SOVALDI [Suspect]
     Active Substance: SOFOSBUVIR
     Indication: HEPATITIS C
     Route: 048
  4. DEPAKENE [Concomitant]
     Active Substance: VALPROIC ACID
  5. NAPROSYN [Concomitant]
     Active Substance: NAPROXEN
  6. RIBASPHERE RIBAPAK [Concomitant]
     Active Substance: RIBAVIRIN
  7. TYLENOL [Concomitant]
     Active Substance: ACETAMINOPHEN

REACTIONS (2)
  - Violence-related symptom [None]
  - Irritability [None]

NARRATIVE: CASE EVENT DATE: 20140715
